FAERS Safety Report 7827078 (Version 4)
Quarter: 2013Q1

REPORT INFORMATION
  Report Type: Report from Study
  Country: GR (occurrence: GR)
  Receive Date: 20110225
  Receipt Date: 20130226
  Transmission Date: 20140127
  Serious: Yes (Death, Hospitalization)
  Sender: FDA-Public Use
  Company Number: GR-ELI_LILLY_AND_COMPANY-GR201102001005

PATIENT
  Age: 67 Year
  Sex: Male
  Weight: 68 kg

DRUGS (3)
  1. NECITUMUMAB [Suspect]
     Indication: NON-SMALL CELL LUNG CANCER
     Dosage: 800 MG, UNK
     Dates: start: 20100825, end: 20110118
  2. PEMETREXED [Suspect]
     Indication: NON-SMALL CELL LUNG CANCER
     Dosage: 930 MG, UNK
     Dates: start: 20100825
  3. CISPLATIN [Suspect]
     Indication: NON-SMALL CELL LUNG CANCER
     Dosage: 139 MG, UNK
     Dates: start: 20100825

REACTIONS (1)
  - Acute hepatitis B [Fatal]
